FAERS Safety Report 17764652 (Version 1)
Quarter: 2020Q2

REPORT INFORMATION
  Report Type: Spontaneous
  Country: US (occurrence: US)
  Receive Date: 20200511
  Receipt Date: 20200511
  Transmission Date: 20200714
  Serious: No
  Sender: FDA-Public Use
  Company Number: US-GLAXOSMITHKLINE-US2020078045

PATIENT
  Age: 78 Year
  Sex: Female

DRUGS (2)
  1. VENTOLIN HFA [Suspect]
     Active Substance: ALBUTEROL SULFATE
     Indication: ASTHMA
     Dosage: UNK,TWO PUFFS EVERY 6 HOURS
     Route: 065
  2. VENTOLIN HFA [Suspect]
     Active Substance: ALBUTEROL SULFATE
     Indication: WHEEZING

REACTIONS (4)
  - Influenza [Unknown]
  - Accidental exposure to product [Unknown]
  - Wrong technique in device usage process [Unknown]
  - Exposure via eye contact [Unknown]

NARRATIVE: CASE EVENT DATE: 20171221
